FAERS Safety Report 8533172-8 (Version None)
Quarter: 2012Q3

REPORT INFORMATION
  Report Type: 
  Country: None (occurrence: None)
  Receive Date: 20120724
  Receipt Date: 20120703
  Transmission Date: 20120928
  Serious: Yes (Hospitalization, Other)
  Sender: FDA-Public Use
  Company Number: US-009507513-1204USA04094

PATIENT

DRUGS (3)
  1. LYRICA [Concomitant]
  2. FOSAMAX [Suspect]
     Indication: BONE DISORDER
     Dosage: 70 MG, QW
     Route: 048
     Dates: start: 20110201, end: 20111201
  3. CALCIUM (UNSPECIFIED) [Concomitant]

REACTIONS (3)
  - FEMUR FRACTURE [None]
  - ARTHRALGIA [None]
  - UPPER LIMB FRACTURE [None]
